FAERS Safety Report 18157463 (Version 1)
Quarter: 2020Q3

REPORT INFORMATION
  Report Type: Spontaneous
  Country: US (occurrence: US)
  Receive Date: 20200817
  Receipt Date: 20200817
  Transmission Date: 20201103
  Serious: No
  Sender: FDA-Public Use
  Company Number: US-SPECGX-T202000337

PATIENT
  Sex: Female
  Weight: 84 kg

DRUGS (1)
  1. OXYCODONE [Suspect]
     Active Substance: OXYCODONE
     Indication: HEADACHE
     Dosage: 1 DOSAGE FORM, Q6H
     Route: 065

REACTIONS (8)
  - Therapeutic product effect decreased [Not Recovered/Not Resolved]
  - Myalgia [Not Recovered/Not Resolved]
  - Product physical issue [Not Recovered/Not Resolved]
  - Ligament pain [Not Recovered/Not Resolved]
  - Arthralgia [Not Recovered/Not Resolved]
  - Palpitations [Not Recovered/Not Resolved]
  - Loss of personal independence in daily activities [Not Recovered/Not Resolved]
  - Headache [Not Recovered/Not Resolved]
